FAERS Safety Report 25983915 (Version 1)
Quarter: 2025Q4

REPORT INFORMATION
  Report Type: Spontaneous
  Country: US (occurrence: None)
  Receive Date: 20251030
  Receipt Date: 20251030
  Transmission Date: 20260118
  Serious: Yes (Hospitalization)
  Sender: FDA-CTU
  Company Number: None

PATIENT
  Age: 65 Year
  Sex: Female

DRUGS (2)
  1. XCOPRI [Suspect]
     Active Substance: CENOBAMATE
     Indication: Epilepsy
     Dosage: FREQUENCY : DAILY;?
     Route: 048
     Dates: start: 20220526
  2. XCOPRI [Concomitant]
     Active Substance: CENOBAMATE
     Dates: start: 20220526

REACTIONS (9)
  - Abnormal behaviour [None]
  - Balance disorder [None]
  - Abdominal discomfort [None]
  - Vomiting [None]
  - Headache [None]
  - Haemorrhage [None]
  - Ear haemorrhage [None]
  - Urinary tract infection [None]
  - Kidney infection [None]

NARRATIVE: CASE EVENT DATE: 20251029
